FAERS Safety Report 10634032 (Version 2)
Quarter: 2015Q1

REPORT INFORMATION
  Report Type: Spontaneous
  Country: US (occurrence: US)
  Receive Date: 20141205
  Receipt Date: 20150302
  Transmission Date: 20150720
  Serious: Yes (Other)
  Sender: FDA-Public Use
  Company Number: US-TEVA-526589USA

PATIENT
  Age: 55 Year
  Sex: Female

DRUGS (4)
  1. COPAXONE [Suspect]
     Active Substance: GLATIRAMER ACETATE
     Indication: MULTIPLE SCLEROSIS
     Route: 065
     Dates: end: 201408
  2. AMPYRA [Suspect]
     Active Substance: DALFAMPRIDINE
     Dosage: 20 MILLIGRAM DAILY;
     Route: 048
     Dates: start: 201308
  3. AMPYRA [Suspect]
     Active Substance: DALFAMPRIDINE
     Indication: MULTIPLE SCLEROSIS
     Dosage: 20 MILLIGRAM DAILY;
     Route: 048
     Dates: start: 20110414, end: 201308
  4. AMPYRA [Suspect]
     Active Substance: DALFAMPRIDINE
     Dosage: 10 MILLIGRAM DAILY;
     Route: 048
     Dates: start: 201308, end: 201308

REACTIONS (14)
  - Abasia [Not Recovered/Not Resolved]
  - Vision blurred [Unknown]
  - Therapeutic response unexpected [Unknown]
  - Secondary progressive multiple sclerosis [Unknown]
  - Personality change [Unknown]
  - Contusion [Unknown]
  - Urinary tract infection [Unknown]
  - Motor dysfunction [Unknown]
  - Peripheral swelling [Recovered/Resolved]
  - Injection site reaction [Unknown]
  - Multiple sclerosis relapse [Unknown]
  - Muscular weakness [Unknown]
  - Fall [Unknown]
  - Feeling jittery [Unknown]

NARRATIVE: CASE EVENT DATE: 2011
